FAERS Safety Report 7590128-X (Version None)
Quarter: 2011Q3

REPORT INFORMATION
  Report Type: 
  Country: None (occurrence: None)
  Receive Date: 20110705
  Receipt Date: 20110627
  Transmission Date: 20111222
  Serious: Yes (Other)
  Sender: FDA-Public Use
  Company Number: B0730320A

PATIENT
  Age: 45 Year
  Sex: Male

DRUGS (6)
  1. TENOFOVIR DISOPROXIL FUMARATE [Suspect]
     Route: 065
  2. LAMIVUDINE [Suspect]
     Route: 065
  3. ABACAVIR [Suspect]
     Route: 065
  4. ZIDOVUDINE [Suspect]
     Route: 065
  5. NEVIRAPINE [Suspect]
     Indication: HIV INFECTION
     Route: 065
  6. STAVUDINE [Suspect]
     Route: 065

REACTIONS (9)
  - ANAEMIA [None]
  - LYMPHADENOPATHY [None]
  - GRANULOMA [None]
  - DISSEMINATED TUBERCULOSIS [None]
  - SPLENIC LESION [None]
  - IMMUNE RECONSTITUTION SYNDROME [None]
  - HEPATOSPLENOMEGALY [None]
  - PYREXIA [None]
  - NEUROPATHY PERIPHERAL [None]
